FAERS Safety Report 9008617 (Version 3)
Quarter: 2013Q2

REPORT INFORMATION
  Report Type: Spontaneous
  Country: DE (occurrence: DE)
  Receive Date: 20130111
  Receipt Date: 20130618
  Transmission Date: 20140414
  Serious: Yes (Life-Threatening, Hospitalization)
  Sender: FDA-Public Use
  Company Number: DE-GLAXOSMITHKLINE-D0078353A

PATIENT
  Sex: Female
  Weight: 45 kg

DRUGS (4)
  1. BENLYSTA [Suspect]
     Indication: SYSTEMIC LUPUS ERYTHEMATOSUS
     Dosage: 480MG PER DAY
     Route: 042
  2. PREDNISOLON [Concomitant]
     Dosage: 30MG PER DAY
     Route: 065
     Dates: start: 20090401
  3. IDEOS [Concomitant]
     Route: 048
  4. LYRICA [Concomitant]
     Dosage: 75MG TWICE PER DAY
     Route: 048

REACTIONS (2)
  - Loss of consciousness [Recovered/Resolved with Sequelae]
  - Ruptured cerebral aneurysm [Unknown]
